FAERS Safety Report 9805711 (Version 2)
Quarter: 2014Q1

REPORT INFORMATION
  Report Type: Spontaneous
  Country: US (occurrence: US)
  Receive Date: 20140109
  Receipt Date: 20140114
  Transmission Date: 20141002
  Serious: Yes (Hospitalization)
  Sender: FDA-Public Use
  Company Number: US-PURDUE-USA-2014-0110044

PATIENT
  Age: 57 Year
  Sex: Male

DRUGS (3)
  1. OXYCONTIN (NDA 22-272) [Suspect]
     Indication: PRODUCT USED FOR UNKNOWN INDICATION
     Dosage: 80 MG, BID
     Route: 048
  2. OXYCONTIN (NDA 22-272) [Suspect]
     Dosage: 20 MG, BID
     Route: 048
  3. OXYCONTIN (NDA 22-272) [Suspect]
     Dosage: 60 MG, TID
     Route: 048
     Dates: start: 20140107

REACTIONS (4)
  - Investigation [Unknown]
  - Product size issue [Recovered/Resolved]
  - Wrong technique in drug usage process [Unknown]
  - Foreign body [Unknown]
